FAERS Safety Report 10188287 (Version 4)
Quarter: 2014Q3

REPORT INFORMATION
  Report Type: Report from Study
  Country: DE (occurrence: DE)
  Receive Date: 20140522
  Receipt Date: 20140808
  Transmission Date: 20150326
  Serious: No
  Sender: FDA-Public Use
  Company Number: DE-PFIZER INC-2014130853

PATIENT
  Age: 36 Year
  Sex: Male
  Weight: 73 kg

DRUGS (3)
  1. BISOPROLOL [Concomitant]
     Active Substance: BISOPROLOL
     Indication: HYPERTENSION
     Dosage: 1.25 MG, 1X/DAY, SCHEDULE:1-0-0
     Route: 048
     Dates: start: 20131225
  2. CRIZOTINIB [Suspect]
     Active Substance: CRIZOTINIB
     Indication: ALVEOLAR SOFT PART SARCOMA
     Dosage: 250 MG, 2X/DAY
     Route: 048
     Dates: start: 20130507
  3. PANTOPRAZOLE [Concomitant]
     Active Substance: PANTOPRAZOLE SODIUM
     Dosage: 40 MG, 1X/DAY, SCHEDULE:1-0-0
     Route: 048
     Dates: start: 20131213

REACTIONS (2)
  - Disease progression [Not Recovered/Not Resolved]
  - Alveolar soft part sarcoma [Not Recovered/Not Resolved]

NARRATIVE: CASE EVENT DATE: 20140421
